FAERS Safety Report 18319381 (Version 3)
Quarter: 2021Q1

REPORT INFORMATION
  Report Type: Other
  Country: CA (occurrence: CA)
  Receive Date: 20200928
  Receipt Date: 20210331
  Transmission Date: 20210419
  Serious: No
  Sender: FDA-Public Use
  Company Number: CA-ROCHE-2686227

PATIENT
  Sex: Female

DRUGS (1)
  1. OCREVUS [Suspect]
     Active Substance: OCRELIZUMAB
     Indication: RELAPSING-REMITTING MULTIPLE SCLEROSIS
     Dosage: 300 MG AT DAY 0 AND 14, THEN 600 MG EVERY 6 MONTH?MAINTENANCE INFUSION ON 29/MAR/2021
     Route: 042
     Dates: start: 20200916

REACTIONS (3)
  - Tooth disorder [Unknown]
  - Balance disorder [Not Recovered/Not Resolved]
  - Influenza [Unknown]
